FAERS Safety Report 14984032 (Version 1)
Quarter: 2018Q2

REPORT INFORMATION
  Report Type: Spontaneous
  Country: US (occurrence: US)
  Receive Date: 20180607
  Receipt Date: 20180607
  Transmission Date: 20180711
  Serious: Yes (Death)
  Sender: FDA-Public Use
  Company Number: US-BAYER-2018-105515

PATIENT
  Sex: Male
  Weight: 127 kg

DRUGS (1)
  1. ALEVE [Suspect]
     Active Substance: NAPROXEN SODIUM
     Indication: PAIN
     Dosage: 5 DF, OM
     Route: 048

REACTIONS (2)
  - Incorrect dosage administered [Unknown]
  - Hepatic failure [Fatal]

NARRATIVE: CASE EVENT DATE: 2017
